FAERS Safety Report 20061135 (Version 1)
Quarter: 2021Q4

REPORT INFORMATION
  Report Type: Report from Study
  Country: AU (occurrence: AU)
  Receive Date: 20211112
  Receipt Date: 20211112
  Transmission Date: 20220303
  Serious: Yes (Other)
  Sender: FDA-Public Use
  Company Number: AU-JNJFOC-20210956175

PATIENT
  Age: 72 Year
  Sex: Female

DRUGS (4)
  1. SIMPONI [Suspect]
     Active Substance: GOLIMUMAB
     Indication: Ankylosing spondylitis
     Route: 058
  2. SIMPONI [Suspect]
     Active Substance: GOLIMUMAB
     Indication: Rheumatoid arthritis
  3. PREDNISOLONE [Suspect]
     Active Substance: PREDNISOLONE
     Route: 065
  4. ASTRAZENECA COVID-19 VACCINE [Suspect]
     Active Substance: AZD-1222
     Indication: Immunisation
     Route: 065

REACTIONS (5)
  - Orthopaedic procedure [Unknown]
  - Lower respiratory tract infection [Not Recovered/Not Resolved]
  - Illness [Not Recovered/Not Resolved]
  - Asthma [Unknown]
  - Back disorder [Unknown]
